FAERS Safety Report 24533901 (Version 5)
Quarter: 2025Q1

REPORT INFORMATION
  Report Type: Other
  Country: PL (occurrence: PL)
  Receive Date: 20241022
  Receipt Date: 20250113
  Transmission Date: 20250409
  Serious: Yes (Other)
  Sender: INCYTE
  Company Number: PL-002147023-NVSC2024PL200292

PATIENT

DRUGS (14)
  1. RUXOLITINIB [Suspect]
     Active Substance: RUXOLITINIB
     Indication: Product used for unknown indication
     Route: 065
  2. RUXOLITINIB [Suspect]
     Active Substance: RUXOLITINIB
     Route: 065
  3. RUXOLITINIB [Suspect]
     Active Substance: RUXOLITINIB
     Route: 065
  4. BASILIXIMAB [Suspect]
     Active Substance: BASILIXIMAB
     Indication: Product used for unknown indication
     Route: 065
  5. CYCLOSPORINE [Suspect]
     Active Substance: CYCLOSPORINE
     Indication: Graft versus host disease
     Route: 065
  6. METHOTREXATE [Suspect]
     Active Substance: METHOTREXATE
     Indication: Graft versus host disease
     Route: 065
  7. METHOTREXATE [Suspect]
     Active Substance: METHOTREXATE
     Dosage: 15 MG, QW
     Route: 042
  8. METHOTREXATE [Suspect]
     Active Substance: METHOTREXATE
     Route: 065
  9. METHOTREXATE [Suspect]
     Active Substance: METHOTREXATE
     Dosage: 15 MG, QW (IN ALL, 2 DOSES 1 X/WEEK)
     Route: 042
     Dates: start: 20240516
  10. METHOTREXATE [Suspect]
     Active Substance: METHOTREXATE
     Dosage: 15 MG, QW
     Route: 042
  11. RITUXIMAB [Suspect]
     Active Substance: RITUXIMAB
     Indication: Product used for unknown indication
     Route: 065
  12. RITUXIMAB [Suspect]
     Active Substance: RITUXIMAB
     Route: 065
  13. RITUXIMAB [Suspect]
     Active Substance: RITUXIMAB
     Route: 065
  14. ETANERCEPT [Suspect]
     Active Substance: ETANERCEPT
     Indication: Product used for unknown indication
     Route: 065

REACTIONS (18)
  - Cytokine release syndrome [Unknown]
  - Capillary leak syndrome [Unknown]
  - Staphylococcal sepsis [Unknown]
  - Venoocclusive liver disease [Unknown]
  - Acute graft versus host disease [Unknown]
  - Pancytopenia [Unknown]
  - Chronic graft versus host disease [Unknown]
  - Drug hypersensitivity [Unknown]
  - Weight increased [Unknown]
  - Diarrhoea [Unknown]
  - Rash maculo-papular [Unknown]
  - Skin lesion [Unknown]
  - Nausea [Unknown]
  - Vomiting [Unknown]
  - Mouth ulceration [Unknown]
  - Body temperature increased [Unknown]
  - General physical health deterioration [Unknown]
  - Oral disorder [Unknown]

NARRATIVE: CASE EVENT DATE: 20231228
